FAERS Safety Report 8390915-4 (Version None)
Quarter: 2012Q2

REPORT INFORMATION
  Report Type: 
  Country: None (occurrence: None)
  Receive Date: 20120529
  Receipt Date: 20120522
  Transmission Date: 20120825
  Serious: Yes (Other)
  Sender: FDA-Public Use
  Company Number: PHHY2011CA63542

PATIENT
  Sex: Female

DRUGS (2)
  1. GRAPE JUICE [Interacting]
     Dosage: UNK UKN, UNK
  2. GILENYA [Suspect]
     Indication: RELAPSING-REMITTING MULTIPLE SCLEROSIS
     Dosage: 0.5 MG, QD
     Route: 048
     Dates: start: 20110712

REACTIONS (15)
  - SKIN MASS [None]
  - ERYTHEMA [None]
  - EMOTIONAL DISORDER [None]
  - FALL [None]
  - FATIGUE [None]
  - ASTHENIA [None]
  - DYSPNOEA [None]
  - DRUG INTERACTION [None]
  - BALANCE DISORDER [None]
  - PAIN [None]
  - MENSTRUATION IRREGULAR [None]
  - CONTUSION [None]
  - TORTICOLLIS [None]
  - MUSCLE SPASTICITY [None]
  - RASH ERYTHEMATOUS [None]
